FAERS Safety Report 15982465 (Version 1)
Quarter: 2019Q1

REPORT INFORMATION
  Report Type: Spontaneous
  Country: US (occurrence: US)
  Receive Date: 20190219
  Receipt Date: 20190219
  Transmission Date: 20190418
  Serious: No
  Sender: FDA-Public Use
  Company Number: US-ENDO PHARMACEUTICALS INC-2018-043629

PATIENT
  Age: 70 Year
  Sex: Male
  Weight: 85.26 kg

DRUGS (3)
  1. XIAFLEX [Suspect]
     Active Substance: COLLAGENASE CLOSTRIDIUM HISTOLYTICUM
     Dosage: UNKNOWN, INJECTION 2
     Route: 026
     Dates: start: 20181005
  2. XIAFLEX [Suspect]
     Active Substance: COLLAGENASE CLOSTRIDIUM HISTOLYTICUM
     Indication: DUPUYTREN^S CONTRACTURE
     Dosage: UNKNOWN, INJECTION 1
     Route: 026
     Dates: start: 20180727
  3. XIAFLEX [Suspect]
     Active Substance: COLLAGENASE CLOSTRIDIUM HISTOLYTICUM
     Dosage: UNKNOWN, INJECTION 3
     Route: 026
     Dates: start: 20181116

REACTIONS (4)
  - Injection site bruising [Recovered/Resolved]
  - Drug ineffective [Unknown]
  - Manufacturing product shipping issue [Unknown]
  - Injection site pain [Recovered/Resolved]

NARRATIVE: CASE EVENT DATE: 2018
